FAERS Safety Report 8084355 (Version 10)
Quarter: 2014Q3

REPORT INFORMATION
  Report Type: Spontaneous
  Country: JP (occurrence: JP)
  Receive Date: 20110810
  Receipt Date: 20140722
  Transmission Date: 20150326
  Serious: Yes (Hospitalization, Disabling)
  Sender: FDA-Public Use
  Company Number: JP-GLAXOSMITHKLINE-B0714652A

PATIENT
  Age: 31 Year
  Sex: Female

DRUGS (3)
  1. DEPAKENE [Suspect]
     Active Substance: VALPROIC ACID
     Indication: EPILEPSY
     Route: 048
     Dates: start: 1998, end: 20110412
  2. FOLIAMIN [Concomitant]
     Active Substance: FOLIC ACID
     Indication: EPILEPSY
     Dosage: 5MG TWICE PER DAY
     Route: 048
     Dates: start: 20110302, end: 20110412
  3. LAMICTAL [Suspect]
     Active Substance: LAMOTRIGINE
     Indication: EPILEPSY
     Dosage: 25MG PER DAY
     Route: 048
     Dates: start: 20110302, end: 20110329

REACTIONS (50)
  - Pneumonia aspiration [Unknown]
  - Pain [Unknown]
  - Dermatitis exfoliative [Unknown]
  - Dysphagia [Unknown]
  - Bedridden [Unknown]
  - Muscular weakness [Not Recovered/Not Resolved]
  - Hepatic function abnormal [Unknown]
  - Shock [Unknown]
  - Eosinophil percentage increased [Unknown]
  - Dyspnoea [Unknown]
  - Nystagmus [Unknown]
  - Anti-NMDA antibody positive [Unknown]
  - Encephalitis autoimmune [Not Recovered/Not Resolved]
  - Drug reaction with eosinophilia and systemic symptoms [Recovered/Resolved]
  - Flushing [Unknown]
  - Hyponatraemia [Unknown]
  - Ascites [Unknown]
  - Hyperthermia [Unknown]
  - C-reactive protein increased [Unknown]
  - Blood creatinine decreased [Unknown]
  - Lymphadenopathy [Unknown]
  - Guillain-Barre syndrome [Unknown]
  - Red blood cell count increased [Unknown]
  - Aspartate aminotransferase increased [Unknown]
  - General physical health deterioration [Unknown]
  - Communication disorder [Unknown]
  - Encephalitis viral [Unknown]
  - Dysarthria [Not Recovered/Not Resolved]
  - Polyneuropathy [Unknown]
  - Depressed level of consciousness [Unknown]
  - Alanine aminotransferase increased [Unknown]
  - Rash [Unknown]
  - Pain [Unknown]
  - Tremor [Unknown]
  - Blood chloride decreased [Unknown]
  - White blood cell count increased [Unknown]
  - Toxic skin eruption [Unknown]
  - Pyrexia [Unknown]
  - Guillain-Barre syndrome [Not Recovered/Not Resolved]
  - Decreased appetite [Unknown]
  - Human herpesvirus 6 infection [Unknown]
  - Blood pressure fluctuation [Unknown]
  - Mental impairment [Unknown]
  - Respiratory failure [Unknown]
  - Dyskinesia [Unknown]
  - Rash [Unknown]
  - Platelet count increased [Unknown]
  - Blood lactate dehydrogenase increased [Unknown]
  - Blood sodium decreased [Unknown]
  - Respiratory failure [Unknown]

NARRATIVE: CASE EVENT DATE: 2011
